FAERS Safety Report 6120389-5 (Version None)
Quarter: 2009Q1

REPORT INFORMATION
  Report Type: 
  Country: None (occurrence: None)
  Receive Date: 20090316
  Receipt Date: 20090316
  Transmission Date: 20090719
  Serious: Yes (Other)
  Sender: FDA-Public Use
  Company Number: None

PATIENT
  Sex: Male

DRUGS (1)
  1. HALDOL [Suspect]
     Indication: BIPOLAR DISORDER
     Dosage: 2 MG PO AM/HS (2 DOSES)
     Route: 048
     Dates: start: 20090224, end: 20090225

REACTIONS (2)
  - DYSTONIA [None]
  - MUSCULOSKELETAL STIFFNESS [None]
